FAERS Safety Report 15258737 (Version 1)
Quarter: 2018Q3

REPORT INFORMATION
  Report Type: Spontaneous
  Country: JP (occurrence: JP)
  Receive Date: 20180809
  Receipt Date: 20180809
  Transmission Date: 20181010
  Serious: Yes (Death, Hospitalization, Disabling, Congenital Anomaly, Other)
  Sender: FDA-Public Use
  Company Number: JP-ASPEN-JPG2018JP007287

PATIENT

DRUGS (43)
  1. DEXAMETHASONE SODIUM PHOSPHATE. [Suspect]
     Active Substance: DEXAMETHASONE SODIUM PHOSPHATE
     Dosage: 3.3 MG, BID
     Route: 065
     Dates: start: 20170429, end: 20170501
  2. FENTOS [Suspect]
     Active Substance: FENTANYL
     Dosage: 2 MG, QD
     Route: 062
     Dates: start: 20170418, end: 20170424
  3. NEXIUM [Suspect]
     Active Substance: ESOMEPRAZOLE MAGNESIUM
     Indication: PROPHYLAXIS
     Dosage: 10 MG, QD
     Route: 065
     Dates: start: 20170317, end: 20170522
  4. DEXART [Suspect]
     Active Substance: DEXAMETHASONE SODIUM PHOSPHATE
     Dosage: 3.3 MG, QD
     Route: 065
     Dates: start: 20170326
  5. PREDONINE [Suspect]
     Active Substance: PREDNISOLONE
     Indication: INTERSTITIAL LUNG DISEASE
     Dosage: 30 MG ONCE AND 15 MG ONCE DAILY
     Route: 065
     Dates: start: 20170517, end: 20170519
  6. OXYCODONE [Suspect]
     Active Substance: OXYCODONE
     Indication: CANCER PAIN
     Dosage: 10 MG, TID
     Route: 065
     Dates: start: 20170317, end: 20170330
  7. DECADRON (DEXAMETHASONE SODIUM PHOSPHATE) [Suspect]
     Active Substance: DEXAMETHASONE SODIUM PHOSPHATE
     Dosage: 0.5 MG, QD
     Route: 048
     Dates: start: 20170405, end: 20170407
  8. OXYCONTIN [Suspect]
     Active Substance: OXYCODONE HYDROCHLORIDE
     Indication: PRODUCT USED FOR UNKNOWN INDICATION
     Dosage: UNK
     Route: 065
     Dates: end: 20170317
  9. HISICEOL [Suspect]
     Active Substance: FRUCTOSE\GLYCERIN
     Dosage: 200 ML, BID
     Route: 065
     Dates: start: 20170323, end: 20170325
  10. HALIZON [Suspect]
     Active Substance: AMPHOTERICIN B
     Indication: ORAL CANDIDIASIS
     Dosage: 1 ML, TID
     Route: 065
     Dates: start: 20170330, end: 20170501
  11. HACHIAZULE (SODIUM BICARBONATE\SODIUM GUALENATE) [Suspect]
     Active Substance: SODIUM BICARBONATE\SODIUM GUALENATE
     Indication: ORAL CANDIDIASIS
     Dosage: 2 G, TID
     Dates: start: 20170330, end: 20170522
  12. KEYTRUDA [Suspect]
     Active Substance: PEMBROLIZUMAB
     Indication: LUNG ADENOCARCINOMA
     Dosage: 200 MG, 1 DOSE 3 WEEKS
     Route: 041
     Dates: start: 20170310, end: 20170418
  13. PRAVASTATIN NA [Suspect]
     Active Substance: PRAVASTATIN SODIUM
     Indication: PRODUCT USED FOR UNKNOWN INDICATION
     Dosage: UNK
     Route: 065
     Dates: end: 20170522
  14. OXINORM (OXYCODONE HYDROCHLORIDE) [Suspect]
     Active Substance: OXYCODONE HYDROCHLORIDE
     Indication: PRODUCT USED FOR UNKNOWN INDICATION
     Dosage: UNK
     Route: 065
  15. DEXAMETHASONE SODIUM PHOSPHATE. [Suspect]
     Active Substance: DEXAMETHASONE SODIUM PHOSPHATE
     Dosage: 1.65 MG, BID
     Route: 065
     Dates: start: 20170502, end: 20170505
  16. ADONA (CARBAZOCHROME SODIUM SULFONATE) [Suspect]
     Active Substance: CARBAZOCHROME SODIUM SULFONATE
     Indication: PRODUCT USED FOR UNKNOWN INDICATION
     Dosage: UNK
     Route: 065
     Dates: start: 20170317, end: 20170319
  17. LOXOPROFEN NA [Suspect]
     Active Substance: LOXOPROFEN SODIUM
     Indication: CANCER PAIN
     Dosage: 60 MG, TID
     Route: 065
     Dates: start: 20170317, end: 20170522
  18. CALONAL [Suspect]
     Active Substance: ACETAMINOPHEN
     Indication: CANCER PAIN
     Dosage: 600 MG, TID
     Route: 065
     Dates: start: 20170317, end: 20170522
  19. MECOBALAMIN [Suspect]
     Active Substance: METHYLCOBALAMIN
     Indication: NEUROPATHY PERIPHERAL
     Dosage: 500 MCG, TID
     Route: 065
     Dates: start: 20170322, end: 20170329
  20. ABSTRAL [Suspect]
     Active Substance: FENTANYL CITRATE
     Indication: CANCER PAIN
     Dosage: 100 MCG, PRN
     Route: 065
     Dates: start: 20170418, end: 20170517
  21. DECADRON (DEXAMETHASONE SODIUM PHOSPHATE) [Suspect]
     Active Substance: DEXAMETHASONE SODIUM PHOSPHATE
     Dosage: 2.0 MG, BID
     Route: 048
     Dates: start: 20170330, end: 20170401
  22. DECADRON (DEXAMETHASONE SODIUM PHOSPHATE) [Suspect]
     Active Substance: DEXAMETHASONE SODIUM PHOSPHATE
     Dosage: 2.0 MG, BID
     Route: 048
     Dates: start: 20170402, end: 20170404
  23. DEXAMETHASONE SODIUM PHOSPHATE. [Suspect]
     Active Substance: DEXAMETHASONE SODIUM PHOSPHATE
     Indication: MALIGNANT NEOPLASM PROGRESSION
     Dosage: 3.3 MG, QD
     Route: 065
     Dates: start: 20170428, end: 20170428
  24. DEXAMETHASONE SODIUM PHOSPHATE. [Suspect]
     Active Substance: DEXAMETHASONE SODIUM PHOSPHATE
     Dosage: 1.65 MG, QD
     Route: 065
     Dates: start: 20170506
  25. FENTOS [Suspect]
     Active Substance: FENTANYL
     Dosage: 3.0 MG, QD
     Route: 062
     Dates: start: 20170428, end: 20170511
  26. MIYA?BM [Suspect]
     Active Substance: CLOSTRIDIUM BUTYRICUM SPORES STRAIN M-55
     Indication: PRODUCT USED FOR UNKNOWN INDICATION
     Dosage: UNK
     Route: 065
     Dates: end: 20170522
  27. DEXART [Suspect]
     Active Substance: DEXAMETHASONE SODIUM PHOSPHATE
     Indication: MALIGNANT NEOPLASM PROGRESSION
     Dosage: 3.3 MG, QD
     Route: 065
     Dates: start: 20170322, end: 20170323
  28. MOHRUS [Suspect]
     Active Substance: KETOPROFEN
     Indication: CANCER PAIN
     Dosage: 1 DF, QD
     Route: 065
     Dates: start: 20170511, end: 20170517
  29. FENTOS [Suspect]
     Active Substance: FENTANYL
     Dosage: 3.0 MG, QD
     Route: 062
     Dates: start: 20170512, end: 20170527
  30. MAGMITT [Suspect]
     Active Substance: MAGNESIUM OXIDE
     Indication: PRODUCT USED FOR UNKNOWN INDICATION
     Dosage: UNK
     Route: 065
     Dates: end: 20170522
  31. LYRICA [Suspect]
     Active Substance: PREGABALIN
     Indication: CANCER PAIN
     Dosage: 75 MG, BID
     Route: 065
     Dates: start: 20170317, end: 20170522
  32. HISICEOL [Suspect]
     Active Substance: FRUCTOSE\GLYCERIN
     Indication: MALIGNANT NEOPLASM PROGRESSION
     Dosage: 200 ML, QD
     Route: 065
     Dates: start: 20170322, end: 20170322
  33. HACHIAZULE (SODIUM BICARBONATE\SODIUM GUALENATE) [Suspect]
     Active Substance: SODIUM BICARBONATE\SODIUM GUALENATE
     Indication: STOMATITIS
  34. QUETIAPINE. [Suspect]
     Active Substance: QUETIAPINE
     Indication: DELIRIUM
     Dosage: 25 MG, QD
     Route: 065
     Dates: start: 20170430, end: 20170508
  35. L?CARBOCISTEINE [Suspect]
     Active Substance: CARBOCYSTEINE
     Indication: INTERSTITIAL LUNG DISEASE
     Dosage: 500 MG, TID
     Route: 065
     Dates: start: 20170511, end: 20170522
  36. FENTOS [Suspect]
     Active Substance: FENTANYL
     Dosage: 3.0 MG, QD
     Route: 062
     Dates: start: 20170425, end: 20170427
  37. METOCLOPRAMIDE. [Suspect]
     Active Substance: METOCLOPRAMIDE
     Indication: PRODUCT USED FOR UNKNOWN INDICATION
     Dosage: UNK
     Route: 065
     Dates: end: 20170522
  38. TRAMCET [Suspect]
     Active Substance: ACETAMINOPHEN\TRAMADOL
     Indication: PRODUCT USED FOR UNKNOWN INDICATION
     Dosage: UNK
     Dates: end: 20170317
  39. TRANEXAMIC ACID. [Suspect]
     Active Substance: TRANEXAMIC ACID
     Indication: HAEMOPTYSIS
     Dosage: 1 G, QD
     Route: 065
     Dates: start: 20170317, end: 20170319
  40. DECADRON (DEXAMETHASONE SODIUM PHOSPHATE) [Suspect]
     Active Substance: DEXAMETHASONE SODIUM PHOSPHATE
     Indication: MALIGNANT NEOPLASM PROGRESSION
     Dosage: 2.0 MG, BID
     Route: 048
     Dates: start: 20170327, end: 20170329
  41. FENTOS [Suspect]
     Active Substance: FENTANYL
     Indication: CANCER PAIN
     Dosage: 1 MG, QD
     Route: 062
     Dates: start: 20170330, end: 20170417
  42. SPIOLTO RESPIMAT [Suspect]
     Active Substance: OLODATEROL HYDROCHLORIDE\TIOTROPIUM BROMIDE MONOHYDRATE
     Indication: PRODUCT USED FOR UNKNOWN INDICATION
     Route: 065
  43. DEXART [Suspect]
     Active Substance: DEXAMETHASONE SODIUM PHOSPHATE
     Dosage: 3.3 MG, BID
     Route: 065
     Dates: start: 20170323, end: 20170325

REACTIONS (15)
  - Cancer pain [Not Recovered/Not Resolved]
  - Stomatitis [Not Recovered/Not Resolved]
  - Pyrexia [Not Recovered/Not Resolved]
  - Dyspnoea [Fatal]
  - Oral candidiasis [Not Recovered/Not Resolved]
  - Pneumonia aspiration [Fatal]
  - Haemoptysis [Recovering/Resolving]
  - Pulmonary alveolar haemorrhage [Unknown]
  - Neuropathy peripheral [Not Recovered/Not Resolved]
  - Delirium [Recovering/Resolving]
  - Metastases to bone [Recovering/Resolving]
  - Interstitial lung disease [Fatal]
  - Cerebral haemorrhage [Not Recovered/Not Resolved]
  - Metastases to central nervous system [None]
  - Malignant neoplasm progression [Not Recovered/Not Resolved]

NARRATIVE: CASE EVENT DATE: 20170315
